FAERS Safety Report 6047138-3 (Version None)
Quarter: 2009Q1

REPORT INFORMATION
  Report Type: 
  Country: None (occurrence: None)
  Receive Date: 20090122
  Receipt Date: 20090114
  Transmission Date: 20090719
  Serious: Yes (Other)
  Sender: FDA-Public Use
  Company Number: PHEH2009US00814

PATIENT
  Sex: Female

DRUGS (1)
  1. FAMVIR [Suspect]
     Indication: HERPES SIMPLEX
     Dosage: UNK
     Dates: start: 20090104

REACTIONS (4)
  - COMPLEX PARTIAL SEIZURES [None]
  - MALAISE [None]
  - NERVOUS SYSTEM DISORDER [None]
  - SKIN DISORDER [None]
